FAERS Safety Report 7757457-8 (Version None)
Quarter: 2011Q3

REPORT INFORMATION
  Report Type: 
  Country: None (occurrence: None)
  Receive Date: 20110916
  Receipt Date: 20110301
  Transmission Date: 20111222
  Serious: No
  Sender: FDA-Public Use
  Company Number: US-BAYER-2011-020240

PATIENT
  Age: 53 Year
  Sex: Female

DRUGS (1)
  1. ULTRAVIST 150 [Suspect]
     Indication: COMPUTERISED TOMOGRAM HEAD
     Dosage: 50 ML, UNK
     Route: 042
     Dates: start: 20110301

REACTIONS (2)
  - COUGH [None]
  - CHEST DISCOMFORT [None]
